FAERS Safety Report 17727502 (Version 2)
Quarter: 2020Q2

REPORT INFORMATION
  Report Type: Spontaneous
  Country: US (occurrence: US)
  Receive Date: 20200430
  Receipt Date: 20200430
  Transmission Date: 20200714
  Serious: No
  Sender: FDA-Public Use
  Company Number: US-JNJFOC-20200427338

PATIENT
  Age: 66 Year
  Sex: Female

DRUGS (1)
  1. MENS ROGAINE EXTRA STRENGTH [Suspect]
     Active Substance: MINOXIDIL
     Indication: ALOPECIA
     Dosage: DOSE:HALF-3 QUARTERS A CAPFUL?LAST USED ON 07-APR-2020.
     Route: 061
     Dates: start: 20150201

REACTIONS (4)
  - Product use issue [Unknown]
  - Intentional product misuse [Unknown]
  - Overdose [Unknown]
  - Product container issue [Unknown]

NARRATIVE: CASE EVENT DATE: 20150201
